FAERS Safety Report 6105134-1 (Version None)
Quarter: 2009Q1

REPORT INFORMATION
  Report Type: 
  Country: None (occurrence: None)
  Receive Date: 20090306
  Receipt Date: 20090303
  Transmission Date: 20090719
  Serious: Yes (Hospitalization, Other)
  Sender: FDA-Public Use
  Company Number: US-BRISTOL-MYERS SQUIBB COMPANY-14526818

PATIENT
  Age: 61 Year
  Sex: Male
  Weight: 56 kg

DRUGS (5)
  1. CETUXIMAB [Suspect]
     Indication: HEAD AND NECK CANCER
     Dosage: STARTED ON 29DEC08 AT 400MG/M2,120 MINS ON DAY 1 WK1,250MG/M2 ON DAY 1 WKS 2-9, UNK-09FEB09
     Route: 042
     Dates: start: 20090209, end: 20090209
  2. VELCADE [Suspect]
     Indication: HEAD AND NECK CANCER
     Dosage: FIRST DOSE ON 29DEC08. GIVEN ON DAYS 1,4,8 AND 11.
     Route: 040
     Dates: start: 20090212, end: 20090212
  3. RADIATION THERAPY [Suspect]
     Indication: HEAD AND NECK CANCER
  4. FENTANYL-100 [Concomitant]
  5. OXYCODONE [Concomitant]
     Indication: PAIN
     Dates: start: 20090212

REACTIONS (8)
  - APNOEA [None]
  - ASPIRATION [None]
  - BACTERAEMIA [None]
  - HYPOPHOSPHATAEMIA [None]
  - HYPOXIA [None]
  - LYMPHOPENIA [None]
  - SOMNOLENCE [None]
  - TROPONIN I INCREASED [None]
